FAERS Safety Report 10519814 (Version 1)
Quarter: 2014Q4

REPORT INFORMATION
  Report Type: Spontaneous
  Country: US (occurrence: None)
  Receive Date: 20141014
  Receipt Date: 20141014
  Transmission Date: 20150528
  Serious: Yes (Hospitalization)
  Sender: FDA-Public Use
  Company Number: None

PATIENT
  Age: 48 Year
  Sex: Female
  Weight: 81.65 kg

DRUGS (10)
  1. VARENICLINE [Suspect]
     Active Substance: VARENICLINE
     Indication: SMOKING CESSATION THERAPY
     Dosage: 0.5MG OR 1.0MG (SEE D.1)
     Route: 048
     Dates: start: 20130401, end: 20130623
  2. VARENICLINE [Suspect]
     Active Substance: VARENICLINE
     Indication: SMOKING CESSATION THERAPY
     Route: 048
     Dates: start: 20130624, end: 20140916
  3. EFFEXOR XR [Concomitant]
     Active Substance: VENLAFAXINE HYDROCHLORIDE
  4. AFINITOR [Concomitant]
     Active Substance: EVEROLIMUS
  5. ALEVE [Concomitant]
     Active Substance: NAPROXEN SODIUM
  6. MORPHINE SULFATE EXTENDED-RELEASE [Concomitant]
     Active Substance: MORPHINE SULFATE
  7. HYDROCODONE [Concomitant]
     Active Substance: HYDROCODONE
  8. OMEGA3 [Concomitant]
  9. CALCIUM CARBONATE. [Concomitant]
     Active Substance: CALCIUM CARBONATE
  10. EXEMESTANE. [Concomitant]
     Active Substance: EXEMESTANE

REACTIONS (3)
  - Fluid retention [None]
  - Abdominal abscess [None]
  - Hernia repair [None]

NARRATIVE: CASE EVENT DATE: 20140929
